FAERS Safety Report 14581221 (Version 1)
Quarter: 2018Q1

REPORT INFORMATION
  Report Type: Spontaneous
  Country: US (occurrence: US)
  Receive Date: 20180227
  Receipt Date: 20180227
  Transmission Date: 20180509
  Serious: Yes (Other)
  Sender: FDA-Public Use
  Company Number: None

PATIENT
  Age: 59 Year
  Sex: Female
  Weight: 69.4 kg

DRUGS (1)
  1. ESTRADIOL TRANSDERMAL SYSTEM [Suspect]
     Active Substance: ESTRADIOL
     Indication: POSTMENOPAUSE

REACTIONS (6)
  - Night sweats [None]
  - Application site erythema [None]
  - Application site pruritus [None]
  - Application site irritation [None]
  - Skin irritation [None]
  - Hot flush [None]

NARRATIVE: CASE EVENT DATE: 2006
